FAERS Safety Report 9735471 (Version 2)
Quarter: 2015Q3

REPORT INFORMATION
  Report Type: Spontaneous
  Country: US (occurrence: US)
  Receive Date: 20131206
  Receipt Date: 20150804
  Transmission Date: 20151125
  Serious: No
  Sender: FDA-Public Use
  Company Number: US-GILEAD-2009-0023305

PATIENT
  Age: 80 Year
  Sex: Female
  Weight: 97.52 kg

DRUGS (12)
  1. COUMADIN [Concomitant]
     Active Substance: WARFARIN SODIUM
  2. METFORMIN [Concomitant]
     Active Substance: METFORMIN HYDROCHLORIDE
  3. ALLOPURINOL. [Concomitant]
     Active Substance: ALLOPURINOL
  4. LASIX [Concomitant]
     Active Substance: FUROSEMIDE
  5. DIOVAN [Concomitant]
     Active Substance: VALSARTAN
  6. SYMBICORT [Concomitant]
     Active Substance: BUDESONIDE\FORMOTEROL FUMARATE DIHYDRATE
  7. LETAIRIS [Suspect]
     Active Substance: AMBRISENTAN
     Indication: PULMONARY ARTERIAL HYPERTENSION
     Route: 048
     Dates: start: 20090709, end: 200907
  8. ATORVASTATIN CALCIUM/AMLODIPINE BESILATE [Concomitant]
  9. PROVENTIL [Concomitant]
     Active Substance: ALBUTEROL
  10. POTASSIUM [Concomitant]
     Active Substance: POTASSIUM
  11. METOPROLOL [Concomitant]
     Active Substance: METOPROLOL
  12. GLIPIZIDE. [Concomitant]
     Active Substance: GLIPIZIDE

REACTIONS (2)
  - Peripheral swelling [Unknown]
  - Dyspnoea [Unknown]
